FAERS Safety Report 8601093-8 (Version None)
Quarter: 2012Q3

REPORT INFORMATION
  Report Type: 
  Country: None (occurrence: None)
  Receive Date: 20120817
  Receipt Date: 20120811
  Transmission Date: 20120928
  Serious: Yes (Hospitalization, Other)
  Sender: FDA-Public Use
  Company Number: PHHO2012IN011897

PATIENT
  Sex: Male
  Weight: 65 kg

DRUGS (6)
  1. CYCLOPHOSPHAMIDE [Suspect]
     Indication: NON-HODGKIN'S LYMPHOMA
     Route: 042
  2. BLINDED NO TREATMENT RECEIVED [Suspect]
     Indication: NON-HODGKIN'S LYMPHOMA
     Dosage: CODE NOT BROKEN
     Route: 042
     Dates: start: 20120806
  3. VINCRISTINE [Suspect]
     Indication: NON-HODGKIN'S LYMPHOMA
     Route: 042
  4. PREDNISONE TAB [Suspect]
     Indication: NON-HODGKIN'S LYMPHOMA
     Route: 048
  5. BLINDED MABTHERA [Suspect]
     Indication: NON-HODGKIN'S LYMPHOMA
     Dosage: CODE NOT BROKEN
     Route: 042
     Dates: start: 20120806
  6. BLINDED GP2013 [Suspect]
     Indication: NON-HODGKIN'S LYMPHOMA
     Dosage: CODE NOT BROKEN
     Route: 042
     Dates: start: 20120806

REACTIONS (2)
  - FEBRILE NEUTROPENIA [None]
  - DIARRHOEA [None]
